FAERS Safety Report 4653511-8 (Version None)
Quarter: 2005Q2

REPORT INFORMATION
  Report Type: 
  Country: None (occurrence: None)
  Receive Date: 20050505
  Receipt Date: 20050225
  Transmission Date: 20051028
  Serious: Yes (Other)
  Sender: FDA-Public Use
  Company Number: US-MERCK-0503USA00089

PATIENT
  Age: 52 Year
  Sex: Male

DRUGS (2)
  1. VIOXX [Suspect]
     Indication: ROTATOR CUFF SYNDROME
     Route: 048
     Dates: start: 20000101, end: 20030220
  2. VIOXX [Suspect]
     Indication: TENDONITIS
     Route: 048
     Dates: start: 20000101, end: 20030220

REACTIONS (3)
  - JOINT DISLOCATION [None]
  - MYOCARDIAL INFARCTION [None]
  - OSTEOARTHRITIS [None]
